FAERS Safety Report 16186753 (Version 5)
Quarter: 2019Q3

REPORT INFORMATION
  Report Type: Spontaneous
  Country: US (occurrence: US)
  Receive Date: 20190411
  Receipt Date: 20190715
  Transmission Date: 20191004
  Serious: Yes (Hospitalization, Other)
  Sender: FDA-Public Use
  Company Number: US-ACTELION-A-US2019-188896

PATIENT
  Age: 3 Year
  Sex: Male

DRUGS (6)
  1. TRACLEER [Suspect]
     Active Substance: BOSENTAN
     Dosage: 2 MG/KG
     Route: 048
     Dates: start: 20181105
  2. TRACLEER [Suspect]
     Active Substance: BOSENTAN
     Indication: PULMONARY HYPERTENSION
     Dosage: 32.5 MG, BID
     Route: 048
     Dates: start: 20190117
  3. TADALAFIL. [Concomitant]
     Active Substance: TADALAFIL
     Dosage: 19 MG, QD
     Route: 048
     Dates: start: 20180129
  4. TRACLEER [Suspect]
     Active Substance: BOSENTAN
     Dosage: 0.5 MG/KG
     Route: 048
     Dates: start: 20180816
  5. TRACLEER [Suspect]
     Active Substance: BOSENTAN
     Dosage: 20 MG BID
     Route: 048
  6. TRACLEER [Suspect]
     Active Substance: BOSENTAN
     Dosage: 32 MG, BID
     Route: 048

REACTIONS (4)
  - Liver function test increased [Not Recovered/Not Resolved]
  - Aspartate aminotransferase increased [Not Recovered/Not Resolved]
  - Ventricular septal defect repair [Recovered/Resolved]
  - Alanine aminotransferase increased [Not Recovered/Not Resolved]

NARRATIVE: CASE EVENT DATE: 201903
